FAERS Safety Report 18714376 (Version 1)
Quarter: 2021Q1

REPORT INFORMATION
  Report Type: Spontaneous
  Country: IT (occurrence: IT)
  Receive Date: 20210108
  Receipt Date: 20210108
  Transmission Date: 20210419
  Serious: Yes (Other)
  Sender: FDA-Public Use
  Company Number: IT-ROCHE-2745522

PATIENT
  Age: 58 Year
  Sex: Male

DRUGS (7)
  1. GAZYVARO [Suspect]
     Active Substance: OBINUTUZUMAB
     Indication: PRODUCT USED FOR UNKNOWN INDICATION
     Dosage: CONCENTRATE FOR SOLUTION FOR INFUSION
     Route: 042
     Dates: start: 20201123
  2. TRIMETON [Concomitant]
     Active Substance: CHLORPHENIRAMINE MALEATE
  3. PANTOPRAZOLO [Concomitant]
     Active Substance: PANTOPRAZOLE SODIUM
  4. ACICLOVIR [Concomitant]
     Active Substance: ACYCLOVIR
  5. PERFALGAN [Concomitant]
     Active Substance: ACETAMINOPHEN
  6. BACTRIM [Concomitant]
     Active Substance: SULFAMETHOXAZOLE\TRIMETHOPRIM
     Route: 048
  7. SOLDESAM [Concomitant]
     Active Substance: DEXAMETHASONE

REACTIONS (3)
  - Blood pressure decreased [Recovered/Resolved]
  - Chills [Recovered/Resolved]
  - Respiratory failure [Recovered/Resolved]

NARRATIVE: CASE EVENT DATE: 20201123
